FAERS Safety Report 5760877-4 (Version None)
Quarter: 2008Q2

REPORT INFORMATION
  Report Type: 
  Country: None (occurrence: None)
  Receive Date: 20080606
  Receipt Date: 20080528
  Transmission Date: 20081010
  Serious: Yes (Hospitalization)
  Sender: FDA-Public Use
  Company Number: JP-AVENTIS-200713543JP

PATIENT
  Age: 75 Year
  Sex: Male
  Weight: 54.9 kg

DRUGS (9)
  1. TAXOTERE [Suspect]
     Route: 041
     Dates: start: 20061108, end: 20061122
  2. RADIOTHERAPY [Concomitant]
     Dosage: DOSE: 66 GY/TOTAL
     Dates: start: 20061011, end: 20061122
  3. CISPLATIN [Concomitant]
     Dosage: DOSE: 25 MG/M2
     Route: 041
     Dates: start: 20061108, end: 20061108
  4. CISPLATIN [Concomitant]
     Dosage: DOSE: 25 MG/M2
     Route: 041
     Dates: start: 20061115, end: 20061115
  5. CISPLATIN [Concomitant]
     Dosage: DOSE: 25 MG/M2
     Route: 041
     Dates: start: 20061122, end: 20061122
  6. OMEPRAZOLE [Concomitant]
     Indication: GASTRITIS
     Route: 048
     Dates: start: 20061011, end: 20061122
  7. TAMSULOSIN HCL [Concomitant]
     Route: 048
     Dates: start: 20061026, end: 20061122
  8. MAGMITT [Concomitant]
     Indication: CONSTIPATION
     Route: 048
     Dates: start: 20061011, end: 20061122
  9. MEFENAMIC ACID [Concomitant]
     Indication: OESOPHAGITIS
     Route: 048
     Dates: start: 20061113, end: 20061122

REACTIONS (2)
  - INSOMNIA [None]
  - RADIATION OESOPHAGITIS [None]
